FAERS Safety Report 5670367-5 (Version None)
Quarter: 2008Q1

REPORT INFORMATION
  Report Type: 
  Country: None (occurrence: None)
  Receive Date: 20080314
  Receipt Date: 20080314
  Transmission Date: 20080703
  Serious: Yes (Hospitalization, Other)
  Sender: FDA-Public Use
  Company Number: None

PATIENT
  Age: 42 Year
  Sex: Female
  Weight: 70.3075 kg

DRUGS (2)
  1. SEROQUEL [Suspect]
     Indication: DEPRESSION
     Dosage: 1 TABLET 1 TIMES A DAY PO
     Route: 048
     Dates: start: 19980808, end: 20080313
  2. SEROQUEL [Suspect]
     Indication: SLEEP DISORDER
     Dosage: 1 TABLET 1 TIMES A DAY PO
     Route: 048
     Dates: start: 19980808, end: 20080313

REACTIONS (3)
  - CEREBROVASCULAR ACCIDENT [None]
  - HEADACHE [None]
  - PAIN [None]
